FAERS Safety Report 8408685-X (Version None)
Quarter: 2012Q2

REPORT INFORMATION
  Report Type: 
  Country: None (occurrence: None)
  Receive Date: 20120604
  Receipt Date: 20120207
  Transmission Date: 20120825
  Serious: No
  Sender: FDA-Public Use
  Company Number: US-NOVEN-12US004061

PATIENT
  Sex: Male
  Weight: 26.757 kg

DRUGS (1)
  1. DAYTRANA [Suspect]
     Indication: ATTENTION DEFICIT/HYPERACTIVITY DISORDER
     Dosage: 30 MG, UNK
     Route: 062
     Dates: start: 20100401

REACTIONS (3)
  - DRUG INEFFECTIVE [None]
  - OFF LABEL USE [None]
  - PRODUCT QUALITY ISSUE [None]
